FAERS Safety Report 23483304 (Version 2)
Quarter: 2024Q1

REPORT INFORMATION
  Report Type: Spontaneous
  Country: US (occurrence: US)
  Receive Date: 20240205
  Receipt Date: 20240208
  Transmission Date: 20240409
  Serious: Yes (Life-Threatening)
  Sender: FDA-Public Use
  Company Number: US-PFIZER INC-202400030111

PATIENT
  Age: 31 Year
  Sex: Male

DRUGS (1)
  1. HEPARIN SODIUM [Suspect]
     Active Substance: HEPARIN SODIUM
     Dosage: BELIEVED TO BE OF A LOT PREPARED FROM PORK LIVER
     Route: 042

REACTIONS (1)
  - Hypersensitivity [Recovered/Resolved]
